FAERS Safety Report 9838053 (Version 2)
Quarter: 2014Q1

REPORT INFORMATION
  Report Type: Spontaneous
  Country: FR (occurrence: FR)
  Receive Date: 20140123
  Receipt Date: 20140124
  Transmission Date: 20141002
  Serious: Yes (Life-Threatening, Hospitalization, Other)
  Sender: FDA-Public Use
  Company Number: FR-PFIZER INC-2014019225

PATIENT
  Age: 50 Year
  Sex: Female

DRUGS (6)
  1. XANAX [Suspect]
     Dosage: 10 MG, SINGLE
     Route: 048
  2. TERCIAN [Suspect]
     Dosage: 1700 MG, SINGLE
     Route: 048
  3. LOXAPAC [Suspect]
     Dosage: 25 MG, SINGLE
     Route: 048
  4. IMOVANE [Suspect]
     Dosage: 56.25 MG, SINGLE
     Route: 048
  5. KLIPAL [Suspect]
     Dosage: 7800 MG, SINGLE
     Route: 048
  6. NOZINAN [Suspect]
     Dosage: 10 ML, SINGLE
     Route: 048

REACTIONS (8)
  - Intentional overdose [Recovering/Resolving]
  - Coma [Recovered/Resolved with Sequelae]
  - Rhabdomyolysis [Recovered/Resolved with Sequelae]
  - Renal failure [Recovered/Resolved]
  - Eschar [Recovering/Resolving]
  - Dermatitis exfoliative [Recovered/Resolved]
  - Dysarthria [Recovering/Resolving]
  - Dry mouth [Recovering/Resolving]
